FAERS Safety Report 20037216 (Version 1)
Quarter: 2021Q4

REPORT INFORMATION
  Report Type: 
  Country: None (occurrence: None)
  Receive Date: 20211105
  Receipt Date: 20211105
  Transmission Date: 20220303
  Serious: Yes (Life-Threatening, Hospitalization, Disabling, Other)
  Sender: FDA-Public Use
  Company Number: None

PATIENT
  Age: 85 Year
  Sex: Female

DRUGS (1)
  1. FENTANYL CITRATE [Suspect]
     Active Substance: FENTANYL CITRATE

REACTIONS (9)
  - Metabolic encephalopathy [None]
  - Haemophilus infection [None]
  - Tracheobronchitis [None]
  - Chronic obstructive pulmonary disease [None]
  - Mental status changes [None]
  - Quadriplegia [None]
  - Areflexia [None]
  - Respiratory distress [None]
  - Hypercapnia [None]
